FAERS Safety Report 14315068 (Version 1)
Quarter: 2017Q4

REPORT INFORMATION
  Report Type: Spontaneous
  Country: ZA (occurrence: ZA)
  Receive Date: 20171221
  Receipt Date: 20171221
  Transmission Date: 20180321
  Serious: Yes (Hospitalization, Other)
  Sender: FDA-Public Use
  Company Number: ZA-MYLANLABS-2017M1078800

PATIENT
  Age: 47 Year
  Sex: Male

DRUGS (7)
  1. BE-TABS PREDNISONE [Suspect]
     Active Substance: PREDNISONE
     Indication: ASTHMA
     Dosage: 5 MG, UNK
     Route: 048
  2. SPIRACTIN                          /00006201/ [Concomitant]
     Active Substance: SPIRONOLACTONE
     Indication: DIURETIC THERAPY
     Dosage: 25 MG, UNK
     Route: 048
  3. ALCHERA [Concomitant]
     Active Substance: ZOPICLONE
     Indication: INSOMNIA
     Dosage: 7.5 MG, UNK
     Route: 048
  4. TAREG [Concomitant]
     Active Substance: VALSARTAN
     Indication: HYPERTENSION
     Dosage: 160 MG, UNK
     Route: 048
  5. MYLAN PANTOPRAZOLE 40 MG [Suspect]
     Active Substance: PANTOPRAZOLE SODIUM
     Indication: ULCER
     Dosage: 40 MG, UNK
     Route: 048
  6. CIRCADIN [Concomitant]
     Active Substance: MELATONIN
     Indication: INSOMNIA
     Dosage: 2 MG, UNK
     Route: 048
  7. STILNOX MR [Concomitant]
     Active Substance: ZOLPIDEM TARTRATE
     Indication: INSOMNIA
     Dosage: 12.5 MG, UNK
     Route: 048

REACTIONS (2)
  - Renal failure [Not Recovered/Not Resolved]
  - Anti-neutrophil cytoplasmic antibody positive vasculitis [Not Recovered/Not Resolved]

NARRATIVE: CASE EVENT DATE: 20171019
